FAERS Safety Report 7504061-2 (Version None)
Quarter: 2011Q2

REPORT INFORMATION
  Report Type: 
  Country: None (occurrence: None)
  Receive Date: 20110525
  Receipt Date: 20110520
  Transmission Date: 20111010
  Serious: Yes (Death, Hospitalization, Other)
  Sender: FDA-Public Use
  Company Number: PHHY2011BR43737

PATIENT
  Sex: Female

DRUGS (2)
  1. RITALIN [Suspect]
     Dosage: 1 DF, QD
  2. EXELON [Suspect]
     Dosage: 1 PATCH A DAY
     Route: 062

REACTIONS (7)
  - ABASIA [None]
  - ANAEMIA [None]
  - CARDIO-RESPIRATORY ARREST [None]
  - FEEDING DISORDER [None]
  - SUPRANUCLEAR PALSY [None]
  - RESPIRATORY DISORDER [None]
  - ESCHAR [None]
